FAERS Safety Report 21881724 (Version 2)
Quarter: 2023Q1

REPORT INFORMATION
  Report Type: Spontaneous
  Country: US (occurrence: US)
  Receive Date: 20230119
  Receipt Date: 20230306
  Transmission Date: 20230418
  Serious: No
  Sender: FDA-Public Use
  Company Number: US-ALKERMES INC.-ALK-2023-000197

PATIENT
  Age: 26 Year
  Sex: Male

DRUGS (3)
  1. VIVITROL [Suspect]
     Active Substance: NALTREXONE
     Indication: Drug dependence
     Dosage: 380 MILLIGRAM, QMO
     Route: 030
     Dates: start: 20220809
  2. VIVITROL [Suspect]
     Active Substance: NALTREXONE
     Indication: Drug abuse
     Dosage: 380 MILLIGRAM, QMO
     Route: 030
     Dates: start: 20220711
  3. VIVITROL [Suspect]
     Active Substance: NALTREXONE
     Indication: Drug use disorder

REACTIONS (7)
  - Skin odour abnormal [Unknown]
  - Cold sweat [Unknown]
  - Injection site reaction [Unknown]
  - Injection site pain [Unknown]
  - Night sweats [Unknown]
  - Anxiety [Unknown]
  - Hyperhidrosis [Unknown]

NARRATIVE: CASE EVENT DATE: 20220701
